FAERS Safety Report 7330796-0 (Version None)
Quarter: 2011Q1

REPORT INFORMATION
  Report Type: 
  Country: None (occurrence: None)
  Receive Date: 20110304
  Receipt Date: 20110301
  Transmission Date: 20110831
  Serious: Yes (Other)
  Sender: FDA-Public Use
  Company Number: US-PFIZER INC-2011045320

PATIENT
  Sex: Female
  Weight: 82.086 kg

DRUGS (6)
  1. CYCLOSPORINE [Concomitant]
     Dosage: 100 MG, 2X/DAY
  2. FLAVOXATE [Concomitant]
     Dosage: 300 MG, 2X/DAY
  3. ARANESP [Concomitant]
     Dosage: UNK
  4. LEXAPRO [Concomitant]
     Dosage: 20 MG, DAILY
  5. RAPAMUNE [Suspect]
     Indication: LIVER TRANSPLANT
     Dosage: 1 MG, DAILY
     Route: 048
     Dates: start: 20101101
  6. LABETALOL [Concomitant]
     Indication: HYPERTENSION
     Dosage: 100 MG, 2X/DAY

REACTIONS (6)
  - PAIN IN EXTREMITY [None]
  - OEDEMA PERIPHERAL [None]
  - BLOOD CREATININE INCREASED [None]
  - HAEMOGLOBIN DECREASED [None]
  - ARTHRALGIA [None]
  - JOINT SWELLING [None]
